FAERS Safety Report 5841765-1 (Version None)
Quarter: 2008Q3

REPORT INFORMATION
  Report Type: 
  Country: None (occurrence: None)
  Receive Date: 20080811
  Receipt Date: 20080811
  Transmission Date: 20090109
  Serious: Yes (Death)
  Sender: FDA-Public Use
  Company Number: None

PATIENT
  Age: 56 Year
  Sex: Female
  Weight: 77.1115 kg

DRUGS (2)
  1. ARIMIDEX [Suspect]
     Indication: NEOPLASM MALIGNANT
  2. ARIMIDEX [Suspect]
     Indication: PROPHYLAXIS

REACTIONS (9)
  - DELIRIUM [None]
  - DIARRHOEA [None]
  - DRUG TOXICITY [None]
  - HEPATIC ENZYME INCREASED [None]
  - INFLUENZA LIKE ILLNESS [None]
  - NAUSEA [None]
  - OXYGEN SATURATION DECREASED [None]
  - PAIN [None]
  - SKIN DISCOLOURATION [None]
